FAERS Safety Report 9262583 (Version 1)
Quarter: 2013Q2

REPORT INFORMATION
  Report Type: Spontaneous
  Country: US (occurrence: None)
  Receive Date: 20130425
  Receipt Date: 20130425
  Transmission Date: 20140414
  Serious: Yes (Other)
  Sender: FDA-Public Use
  Company Number: GER/UKI/13/0029181

PATIENT
  Sex: Male

DRUGS (1)
  1. AMLODIPINE [Suspect]
     Indication: BLOOD PRESSURE INCREASED

REACTIONS (6)
  - Dizziness [None]
  - Neck injury [None]
  - Ligament sprain [None]
  - Syncope [None]
  - Myalgia [None]
  - Muscle twitching [None]
